FAERS Safety Report 14962869 (Version 2)
Quarter: 2018Q2

REPORT INFORMATION
  Report Type: Spontaneous
  Country: PL (occurrence: PL)
  Receive Date: 20180601
  Receipt Date: 20180610
  Transmission Date: 20180711
  Serious: Yes (Hospitalization)
  Sender: FDA-Public Use
  Company Number: PHHY2018PL010720

PATIENT
  Age: 78 Year
  Sex: Male

DRUGS (3)
  1. DIGOXIN. [Suspect]
     Active Substance: DIGOXIN
     Indication: PRODUCT USED FOR UNKNOWN INDICATION
     Dosage: 0.25 MG, UNK (30 TABLETS) (7.5 MG)
     Route: 065
  2. ZOLPIDEM [Suspect]
     Active Substance: ZOLPIDEM\ZOLPIDEM TARTRATE
     Indication: PRODUCT USED FOR UNKNOWN INDICATION
     Dosage: 10 MG, UNK (20 TABLETS) (200 MG)
     Route: 065
  3. THEOPHYLLINE [Suspect]
     Active Substance: THEOPHYLLINE ANHYDROUS
     Indication: PRODUCT USED FOR UNKNOWN INDICATION
     Dosage: 150 MG, UNK (30 TABLETS) (4.5 G)
     Route: 065

REACTIONS (8)
  - Toxicity to various agents [Recovering/Resolving]
  - Normocytic anaemia [Recovering/Resolving]
  - Suicidal ideation [Recovering/Resolving]
  - Myocardial infarction [Recovering/Resolving]
  - Conduction disorder [Recovering/Resolving]
  - Hypotension [Recovering/Resolving]
  - Atrioventricular block first degree [Recovering/Resolving]
  - Ventricular arrhythmia [Recovering/Resolving]
